FAERS Safety Report 20427224 (Version 1)
Quarter: 2022Q1

REPORT INFORMATION
  Report Type: Report from Study
  Country: US (occurrence: US)
  Receive Date: 20220204
  Receipt Date: 20220204
  Transmission Date: 20220424
  Serious: No
  Sender: FDA-Public Use
  Company Number: US-EXELIXIS-CABO-21043825

PATIENT
  Age: 65 Year
  Sex: Male

DRUGS (2)
  1. CABOMETYX [Suspect]
     Active Substance: CABOZANTINIB S-MALATE
     Indication: Renal cancer
     Dosage: 60 MG, QD
     Route: 048
     Dates: start: 20210809
  2. CABOMETYX [Suspect]
     Active Substance: CABOZANTINIB S-MALATE
     Dosage: 20 MG, QD
     Route: 048
     Dates: start: 20211105

REACTIONS (9)
  - Ageusia [Unknown]
  - Nasal ulcer [Unknown]
  - Skin discolouration [Unknown]
  - Sneezing [Unknown]
  - Rhinorrhoea [Unknown]
  - Skin ulcer [Unknown]
  - Rash pustular [Unknown]
  - Epistaxis [Unknown]
  - Dysphonia [Unknown]

NARRATIVE: CASE EVENT DATE: 20211001
